FAERS Safety Report 14505246 (Version 2)
Quarter: 2018Q1

REPORT INFORMATION
  Report Type: Spontaneous
  Country: DE (occurrence: DE)
  Receive Date: 20180208
  Receipt Date: 20180312
  Transmission Date: 20180509
  Serious: Yes (Hospitalization, Other)
  Sender: FDA-Public Use
  Company Number: DE-AUROBINDO-AUR-APL-2018-002054

PATIENT
  Age: 43 Year
  Sex: Female

DRUGS (16)
  1. QUETIAPINE. [Suspect]
     Active Substance: QUETIAPINE
     Indication: AGITATION
     Dosage: 150 MG, DAILY
     Route: 048
  2. GOSERELIN [Suspect]
     Active Substance: GOSERELIN
     Indication: BREAST CANCER
     Dosage: ()
     Route: 065
  3. MIRTAZAPIN [Concomitant]
     Active Substance: MIRTAZAPINE
     Indication: ANTIDEPRESSANT THERAPY
     Dosage: 15 MILLIGRAM
  4. DOCETAXEL. [Suspect]
     Active Substance: DOCETAXEL
     Indication: BREAST CANCER
     Dosage: 2 X 4 CYCLES ()
     Route: 065
  5. DOCETAXEL. [Suspect]
     Active Substance: DOCETAXEL
     Dosage: 2 X 4 CYCLES ()
  6. TRASTUZUMAB. [Suspect]
     Active Substance: TRASTUZUMAB
     Indication: BREAST CANCER
     Dosage: 2 X 4 CYCLES ()
     Route: 065
  7. TRASTUZUMAB. [Suspect]
     Active Substance: TRASTUZUMAB
     Dosage: 2 X 4 CYCLES ()
  8. LITHIUM CARBONATE. [Concomitant]
     Active Substance: LITHIUM CARBONATE
     Indication: ANTIDEPRESSANT THERAPY
     Dosage: 675 MILLIGRAM
  9. GOSERELIN [Suspect]
     Active Substance: GOSERELIN
     Dosage: ()
     Route: 058
  10. TRASTUZUMAB. [Suspect]
     Active Substance: TRASTUZUMAB
     Dosage: ()
  11. EPIRUBICIN [Suspect]
     Active Substance: EPIRUBICIN
     Indication: BREAST CANCER
     Dosage: 2 X 4 CYCLES ()
     Route: 065
  12. EPIRUBICIN [Suspect]
     Active Substance: EPIRUBICIN
     Dosage: 2 X 4 CYCLES ()
  13. VENLAFAXIN [Concomitant]
     Active Substance: VENLAFAXINE HYDROCHLORIDE
     Indication: ANTIDEPRESSANT THERAPY
     Dosage: 113 MILLIGRAM
  14. TRASTUZUMAB. [Suspect]
     Active Substance: TRASTUZUMAB
     Dosage: ()
     Route: 065
  15. CYCLOPHOSPHAMIDE. [Suspect]
     Active Substance: CYCLOPHOSPHAMIDE
     Indication: BREAST CANCER
     Dosage: 2 X 4 CYCLES ()
     Route: 065
  16. ARIPIPRAZOL [Concomitant]
     Active Substance: ARIPIPRAZOLE
     Indication: MERYCISM
     Dosage: 5 MILLIGRAM

REACTIONS (11)
  - Merycism [Not Recovered/Not Resolved]
  - Arachnoid cyst [Not Recovered/Not Resolved]
  - Cognitive disorder [Not Recovered/Not Resolved]
  - Cerebral atrophy [Not Recovered/Not Resolved]
  - Suicidal ideation [Not Recovered/Not Resolved]
  - Memory impairment [Not Recovered/Not Resolved]
  - Mood swings [Recovering/Resolving]
  - Logorrhoea [Not Recovered/Not Resolved]
  - Agitation [Not Recovered/Not Resolved]
  - Disturbance in attention [Not Recovered/Not Resolved]
  - Depressed mood [Recovering/Resolving]
